FAERS Safety Report 9932136 (Version 1)
Quarter: 2014Q1

REPORT INFORMATION
  Report Type: Spontaneous
  Country: US (occurrence: None)
  Receive Date: 20140227
  Receipt Date: 20140227
  Transmission Date: 20141002
  Serious: Yes (Hospitalization)
  Sender: FDA-Public Use
  Company Number: None

PATIENT
  Age: 43 Year
  Sex: Male
  Weight: 58.7 kg

DRUGS (4)
  1. RITUXIMAB [Suspect]
     Indication: INVESTIGATION
     Dosage: IVPB (GIVEN ON DAY 15 PRE TRANSPLANT)
     Dates: start: 20140121
  2. CELLCEPT [Concomitant]
  3. TACROLIMUS [Concomitant]
  4. PREDNISONE [Concomitant]

REACTIONS (4)
  - Dysuria [None]
  - Micturition urgency [None]
  - Pain [None]
  - Constipation [None]
